FAERS Safety Report 10899219 (Version 2)
Quarter: 2015Q2

REPORT INFORMATION
  Report Type: Spontaneous
  Country: US (occurrence: US)
  Receive Date: 20150309
  Receipt Date: 20150511
  Transmission Date: 20150821
  Serious: Yes (Other)
  Sender: FDA-Public Use
  Company Number: US-ASTRAZENECA-2015SE19931

PATIENT
  Age: 16 Month
  Sex: Male
  Weight: 25.5 kg

DRUGS (14)
  1. SYNAGIS [Suspect]
     Active Substance: PALIVIZUMAB
     Indication: VENTRICULO-VASCULAR SHUNT
     Route: 030
     Dates: start: 20141125
  2. SYNAGIS [Suspect]
     Active Substance: PALIVIZUMAB
     Indication: VENTRICULO-VASCULAR SHUNT
     Route: 030
     Dates: start: 20150217
  3. SYNAGIS [Suspect]
     Active Substance: PALIVIZUMAB
     Indication: CONGENITAL ANOMALY
     Route: 030
     Dates: start: 20150120
  4. SYNAGIS [Suspect]
     Active Substance: PALIVIZUMAB
     Indication: CONGENITAL ANOMALY
     Route: 030
     Dates: start: 20150317
  5. SYNAGIS [Suspect]
     Active Substance: PALIVIZUMAB
     Indication: CONGENITAL ANOMALY
     Route: 030
     Dates: start: 20141125
  6. SYNAGIS [Suspect]
     Active Substance: PALIVIZUMAB
     Indication: CONGENITAL ANOMALY
     Route: 030
     Dates: start: 20150421
  7. SYNAGIS [Suspect]
     Active Substance: PALIVIZUMAB
     Indication: VENTRICULO-VASCULAR SHUNT
     Route: 030
     Dates: start: 20150421
  8. SYNAGIS [Suspect]
     Active Substance: PALIVIZUMAB
     Indication: CONGENITAL ANOMALY
     Dosage: 15 MG/KG, 50 MG MONTHLY
     Route: 030
     Dates: start: 2013
  9. SYNAGIS [Suspect]
     Active Substance: PALIVIZUMAB
     Indication: VENTRICULO-VASCULAR SHUNT
     Dosage: 15 MG/KG, 50 MG MONTHLY
     Route: 030
     Dates: start: 2013
  10. SYNAGIS [Suspect]
     Active Substance: PALIVIZUMAB
     Indication: VENTRICULO-VASCULAR SHUNT
     Route: 030
     Dates: start: 20141223
  11. SYNAGIS [Suspect]
     Active Substance: PALIVIZUMAB
     Indication: VENTRICULO-VASCULAR SHUNT
     Route: 030
     Dates: start: 20150317
  12. SYNAGIS [Suspect]
     Active Substance: PALIVIZUMAB
     Indication: CONGENITAL ANOMALY
     Route: 030
     Dates: start: 20150217
  13. SYNAGIS [Suspect]
     Active Substance: PALIVIZUMAB
     Indication: CONGENITAL ANOMALY
     Route: 030
     Dates: start: 20141223
  14. SYNAGIS [Suspect]
     Active Substance: PALIVIZUMAB
     Indication: VENTRICULO-VASCULAR SHUNT
     Route: 030
     Dates: start: 20150120

REACTIONS (3)
  - Head circumference abnormal [Recovered/Resolved]
  - Vomiting [Recovered/Resolved]
  - Pyrexia [Recovered/Resolved]

NARRATIVE: CASE EVENT DATE: 201501
